FAERS Safety Report 9792004 (Version 1)
Quarter: 2014Q1

REPORT INFORMATION
  Report Type: Spontaneous
  Country: US (occurrence: US)
  Receive Date: 20140102
  Receipt Date: 20140102
  Transmission Date: 20141002
  Serious: Yes (Other)
  Sender: FDA-Public Use
  Company Number: US-UCBSA-107064

PATIENT
  Age: 7 Year
  Sex: Female

DRUGS (3)
  1. VIMPAT [Suspect]
     Indication: CONVULSION
     Dosage: MAXIMUM DOSE
  2. KEPPRA [Suspect]
     Indication: CONVULSION
     Dosage: MAXIMUM DOSE
  3. ONFI [Concomitant]
     Indication: CONVULSION

REACTIONS (1)
  - Brain lobectomy [Unknown]
